FAERS Safety Report 6993446-9 (Version None)
Quarter: 2010Q3

REPORT INFORMATION
  Report Type: 
  Country: None (occurrence: None)
  Receive Date: 20100917
  Receipt Date: 20100517
  Transmission Date: 20110219
  Serious: No
  Sender: FDA-Public Use
  Company Number: US-ASTRAZENECA-2010SE22727

PATIENT
  Age: 11 Year
  Sex: Female
  Weight: 31.3 kg

DRUGS (7)
  1. SEROQUEL [Suspect]
     Indication: BIPOLAR I DISORDER
     Route: 048
     Dates: start: 20091101
  2. SEROQUEL [Suspect]
     Indication: OBSESSIVE-COMPULSIVE DISORDER
     Route: 048
     Dates: start: 20091101
  3. SEROQUEL [Suspect]
     Dosage: EVERY FOUR HOURS FOR 5 DOSES PER DAY
     Route: 048
  4. SEROQUEL [Suspect]
     Dosage: EVERY FOUR HOURS FOR 5 DOSES PER DAY
     Route: 048
  5. VYVANSE [Concomitant]
  6. TRAZODONE HCL [Concomitant]
  7. LAMICTAL [Concomitant]

REACTIONS (6)
  - AGGRESSION [None]
  - BIPOLAR DISORDER [None]
  - DEPRESSION [None]
  - HISTRIONIC PERSONALITY DISORDER [None]
  - OFF LABEL USE [None]
  - TACHYPHRENIA [None]
